FAERS Safety Report 20119838 (Version 1)
Quarter: 2021Q4

REPORT INFORMATION
  Report Type: Spontaneous
  Country: IT (occurrence: IT)
  Receive Date: 20211126
  Receipt Date: 20211126
  Transmission Date: 20220303
  Serious: Yes (Other)
  Sender: FDA-Public Use
  Company Number: IT-CHIESI-2021CHF05426

PATIENT
  Age: 50 Year
  Sex: Female

DRUGS (2)
  1. HYDROXYUREA [Suspect]
     Active Substance: HYDROXYUREA
     Indication: Foetal haemoglobin increased
     Dosage: 1 AGU/ML, QD
     Route: 065
     Dates: start: 202109, end: 20211020
  2. FERRIPROX [Suspect]
     Active Substance: DEFERIPRONE
     Indication: Sickle cell disease
     Dosage: 70 MILLIGRAM/KILOGRAM, QD
     Route: 048
     Dates: start: 20210922, end: 20211020

REACTIONS (1)
  - Agranulocytosis [Not Recovered/Not Resolved]

NARRATIVE: CASE EVENT DATE: 20211020
